FAERS Safety Report 5022588-2 (Version None)
Quarter: 2006Q2

REPORT INFORMATION
  Report Type: 
  Country: None (occurrence: None)
  Receive Date: 20060609
  Receipt Date: 20060531
  Transmission Date: 20061013
  Serious: Yes (Hospitalization)
  Sender: FDA-Public Use
  Company Number: DE-ABBOTT-06P-062-0334882-00

PATIENT
  Sex: Female

DRUGS (5)
  1. HUMIRA [Suspect]
     Indication: RHEUMATOID ARTHRITIS
     Route: 058
     Dates: start: 20051020, end: 20060401
  2. HUMIRA [Suspect]
     Route: 058
     Dates: start: 20060501
  3. METHOTREXATE [Concomitant]
     Indication: RHEUMATOID ARTHRITIS
  4. GLUCOCORTICOIDS [Concomitant]
     Indication: RHEUMATOID ARTHRITIS
     Route: 048
  5. UNSPECIFIED NSAR [Concomitant]
     Indication: RHEUMATOID ARTHRITIS

REACTIONS (1)
  - KNEE ARTHROPLASTY [None]
